FAERS Safety Report 7320877-X (Version None)
Quarter: 2011Q1

REPORT INFORMATION
  Report Type: 
  Country: None (occurrence: None)
  Receive Date: 20110228
  Receipt Date: 20110215
  Transmission Date: 20110831
  Serious: Yes (Hospitalization, Disabling)
  Sender: FDA-Public Use
  Company Number: US-MERCK-1010USA00667

PATIENT
  Age: 51 Year
  Sex: Female
  Weight: 82 kg

DRUGS (2)
  1. FOSAMAX PLUS D [Suspect]
     Indication: OSTEOPENIA
     Route: 048
     Dates: start: 20071212, end: 20081030
  2. FOSAMAX [Suspect]
     Indication: OSTEOPENIA
     Route: 048
     Dates: start: 19980101, end: 20071201

REACTIONS (23)
  - DEVICE FAILURE [None]
  - DRY EYE [None]
  - ILIOTIBIAL BAND SYNDROME [None]
  - DEPRESSION [None]
  - FEMUR FRACTURE [None]
  - GASTROOESOPHAGEAL REFLUX DISEASE [None]
  - HAEMATOMA [None]
  - ADVERSE DRUG REACTION [None]
  - BLOOD CHOLESTEROL INCREASED [None]
  - RESPIRATORY TRACT CONGESTION [None]
  - PAIN IN EXTREMITY [None]
  - SLEEP APNOEA SYNDROME [None]
  - MUSCLE TIGHTNESS [None]
  - PAIN IN JAW [None]
  - HYPERMETROPIA [None]
  - PAIN [None]
  - RHINORRHOEA [None]
  - COUGH [None]
  - TENDONITIS [None]
  - LOW TURNOVER OSTEOPATHY [None]
  - FATIGUE [None]
  - HEADACHE [None]
  - ROTATOR CUFF SYNDROME [None]
